APPROVED DRUG PRODUCT: ZOLEDRONIC ACID
Active Ingredient: ZOLEDRONIC ACID
Strength: EQ 4MG BASE/100ML (EQ 0.04MG BASE/ML)
Dosage Form/Route: SOLUTION;INTRAVENOUS
Application: N204016 | Product #001
Applicant: HOSPIRA INC
Approved: Dec 28, 2015 | RLD: No | RS: No | Type: DISCN